FAERS Safety Report 4742505-X (Version None)
Quarter: 2005Q3

REPORT INFORMATION
  Report Type: 
  Country: None (occurrence: None)
  Receive Date: 20050808
  Receipt Date: 20050725
  Transmission Date: 20060218
  Serious: Yes (Death, Other)
  Sender: FDA-Public Use
  Company Number: US-2005-014740

PATIENT
  Age: 87 Year
  Sex: Female

DRUGS (1)
  1. FLUDARA [Suspect]
     Indication: CHRONIC LYMPHOCYTIC LEUKAEMIA
     Dosage: 25 MG/M2, X 5 DAYS FOR 6 CYCLES, INTRAVENOUS
     Route: 042
     Dates: start: 19990301, end: 19990901

REACTIONS (6)
  - B-CELL SMALL LYMPHOCYTIC LYMPHOMA [None]
  - BASAL CELL CARCINOMA [None]
  - INFECTION [None]
  - LYMPHOPENIA [None]
  - MALIGNANT PLEURAL EFFUSION [None]
  - RECURRENT CANCER [None]
